FAERS Safety Report 5768298-5 (Version None)
Quarter: 2008Q2

REPORT INFORMATION
  Report Type: 
  Country: None (occurrence: None)
  Receive Date: 20080612
  Receipt Date: 20080304
  Transmission Date: 20081010
  Serious: No
  Sender: FDA-Public Use
  Company Number: PR-ABBOTT-08P-131-0441532-00

PATIENT
  Sex: Female

DRUGS (7)
  1. HUMIRA [Suspect]
     Indication: RHEUMATOID ARTHRITIS
     Route: 058
  2. METHOTREXATE [Concomitant]
     Indication: RHEUMATOID ARTHRITIS
     Route: 048
  3. GABAPECTIN [Concomitant]
     Indication: PAIN
     Route: 048
  4. SULINDAC [Concomitant]
     Indication: PAIN
     Route: 048
  5. SULINDAC [Concomitant]
     Route: 048
  6. FERROUS SULFATE TAB [Concomitant]
     Indication: ANAEMIA
     Route: 048
  7. SERETIDE [Concomitant]
     Indication: ASTHMA
     Route: 048

REACTIONS (1)
  - BLISTER [None]
